FAERS Safety Report 25518787 (Version 3)
Quarter: 2025Q4

REPORT INFORMATION
  Report Type: Spontaneous
  Country: US (occurrence: None)
  Receive Date: 20250704
  Receipt Date: 20251014
  Transmission Date: 20260118
  Serious: Yes (Other)
  Sender: UCB
  Company Number: US-UCBSA-2025040004

PATIENT

DRUGS (11)
  1. KEPPRA [Suspect]
     Active Substance: LEVETIRACETAM
     Indication: Seizure
     Dosage: UNK
  2. ALLOPURINOL [Concomitant]
     Active Substance: ALLOPURINOL
     Indication: Rheumatoid arthritis
  3. ATORVASTATIN [Concomitant]
     Active Substance: ATORVASTATIN
     Indication: Blood cholesterol
  4. ELIQUIS [Concomitant]
     Active Substance: APIXABAN
     Indication: Atrial fibrillation
  5. LISINOPRIL [Concomitant]
     Active Substance: LISINOPRIL
     Indication: Blood pressure measurement
  6. FOLIC ACID [Concomitant]
     Active Substance: FOLIC ACID
     Indication: Product used for unknown indication
  7. METHENAMINE [Concomitant]
     Active Substance: METHENAMINE
     Indication: Product used for unknown indication
  8. METHOTREXATE [Concomitant]
     Active Substance: METHOTREXATE
     Indication: Rheumatoid arthritis
  9. TRIAMCINOLONE ACETONIDE [Concomitant]
     Active Substance: TRIAMCINOLONE ACETONIDE
     Indication: Wheezing
  10. MECLIZINE [Concomitant]
     Active Substance: MECLIZINE HYDROCHLORIDE
     Indication: Dizziness
  11. MECLIZINE [Concomitant]
     Active Substance: MECLIZINE HYDROCHLORIDE
     Indication: Vertigo

REACTIONS (2)
  - Cerebrovascular accident [Recovered/Resolved]
  - Drug hypersensitivity [Unknown]
